FAERS Safety Report 9386848 (Version 1)
Quarter: 2013Q3

REPORT INFORMATION
  Report Type: Spontaneous
  Country: US (occurrence: US)
  Receive Date: 20130708
  Receipt Date: 20130708
  Transmission Date: 20140515
  Serious: Yes (Hospitalization, Other)
  Sender: FDA-Public Use
  Company Number: US-BAYER-2013-079884

PATIENT
  Sex: Female
  Weight: 93 kg

DRUGS (7)
  1. BETASERON [Suspect]
     Dosage: 0.3 MG, QOD
     Route: 058
     Dates: start: 2000
  2. DIMETHYL FUMARATE [Concomitant]
  3. ZOLOFT [Concomitant]
     Dosage: 100 MG, UNK
  4. LOTREL [Concomitant]
     Dosage: 10-40 MG
  5. BACLOFEN [Concomitant]
     Dosage: 10 MG, UNK
  6. WELLBUTRIN SR [Concomitant]
     Dosage: 100 MG, UNK
  7. PROPOXYPHENE NAPSYLATE W/ACETAMINOPHENE [Concomitant]
     Indication: PAIN
     Dosage: UNK UNK, PRN

REACTIONS (5)
  - Weight increased [Unknown]
  - Urinary tract infection [Unknown]
  - Kidney infection [Unknown]
  - Dehydration [Unknown]
  - Fatigue [Unknown]
